FAERS Safety Report 24689525 (Version 2)
Quarter: 2024Q4

REPORT INFORMATION
  Report Type: Spontaneous
  Country: DE (occurrence: DE)
  Receive Date: 20241203
  Receipt Date: 20241220
  Transmission Date: 20250115
  Serious: Yes (Other)
  Sender: TEVA
  Company Number: DE-TEVA-VS-3270192

PATIENT
  Sex: Female

DRUGS (1)
  1. LETROZOLE [Suspect]
     Active Substance: LETROZOLE
     Indication: Breast cancer
     Route: 065
     Dates: start: 202403

REACTIONS (3)
  - Osteoarthritis [Unknown]
  - Joint effusion [Unknown]
  - Cyst [Unknown]

NARRATIVE: CASE EVENT DATE: 20240901
